FAERS Safety Report 9059736 (Version 1)
Quarter: 2013Q1

REPORT INFORMATION
  Report Type: Report from Study
  Country: JP (occurrence: JP)
  Receive Date: 20130211
  Receipt Date: 20130211
  Transmission Date: 20140127
  Serious: Yes (Other)
  Sender: FDA-Public Use
  Company Number: JP-GILEAD-2013-0069632

PATIENT
  Age: 66 None
  Sex: Male

DRUGS (11)
  1. AMBRISENTAN [Suspect]
     Indication: PULMONARY ARTERIAL HYPERTENSION
     Dosage: 10 MG, QD
     Dates: start: 20101015
  2. ADCIRCA [Concomitant]
     Indication: PULMONARY ARTERIAL HYPERTENSION
     Dosage: UNK
     Route: 048
  3. BERASUS [Concomitant]
     Indication: PULMONARY ARTERIAL HYPERTENSION
     Route: 048
  4. FUROSEMIDE [Concomitant]
     Indication: RIGHT VENTRICULAR FAILURE
     Route: 048
  5. ERYTHROCIN                         /00020901/ [Concomitant]
     Route: 048
  6. MUCODYNE [Concomitant]
     Route: 048
  7. PARIET [Concomitant]
     Route: 048
  8. STARSIS [Concomitant]
     Route: 048
  9. MAGNESIUM OXIDE [Concomitant]
     Route: 048
  10. TOWK [Concomitant]
     Route: 045
  11. SPIRIVA [Concomitant]
     Route: 055

REACTIONS (2)
  - Right ventricular failure [Recovered/Resolved]
  - Pneumonia [Recovered/Resolved]
